FAERS Safety Report 10967914 (Version 9)
Quarter: 2015Q3

REPORT INFORMATION
  Report Type: Spontaneous
  Country: US (occurrence: US)
  Receive Date: 20150330
  Receipt Date: 20150723
  Transmission Date: 20151125
  Serious: Yes (Hospitalization, Other)
  Sender: FDA-Public Use
  Company Number: US-GLAXOSMITHKLINE-US2015GSK040262

PATIENT
  Age: 30 Year
  Sex: Female

DRUGS (6)
  1. FLOLAN [Suspect]
     Active Substance: EPOPROSTENOL SODIUM
     Indication: PULMONARY HYPERTENSION
     Dosage: 9 NG/KG/MIN CONTINUOUS, CONCENTRATION: 15000NG/ML, PUMP RATE: 46 ML/DAY
     Route: 042
     Dates: start: 20150320
  2. FLOLAN [Suspect]
     Active Substance: EPOPROSTENOL SODIUM
     Dosage: 17NG/KG/MIN (CONCENTRATION 15,000 NG/ML, PUMP RATE 86 ML/DAY, VIAL STRENGTH 1.5 MG), CO
     Route: 042
  3. FLOLAN [Suspect]
     Active Substance: EPOPROSTENOL SODIUM
     Dosage: 19 NG/KG/MIN (CONCENTRATION 15,000 NG/ML, PUMP RATE 48 ML/DAY, VIAL STRENGTH 1.5 MG), CO
     Route: 042
     Dates: start: 20150320
  4. VELETRI [Suspect]
     Active Substance: EPOPROSTENOL
     Indication: PULMONARY HYPERTENSION
     Dosage: UNK, U
     Route: 065
     Dates: start: 2015
  5. FLOLAN [Suspect]
     Active Substance: EPOPROSTENOL SODIUM
     Dosage: 12 NG/KG/MIN
  6. FLOLAN [Suspect]
     Active Substance: EPOPROSTENOL SODIUM
     Dosage: 17 NG/KG/MIN

REACTIONS (19)
  - Limb discomfort [Unknown]
  - Central venous catheterisation [Unknown]
  - Pruritus [Unknown]
  - Pain of skin [Not Recovered/Not Resolved]
  - Medical device complication [Unknown]
  - Hospitalisation [Not Recovered/Not Resolved]
  - Pain in extremity [Unknown]
  - Erythema [Unknown]
  - Rash [Unknown]
  - Skin irritation [Recovering/Resolving]
  - Panic reaction [Unknown]
  - Infusion site infection [Recovered/Resolved]
  - Pain in jaw [Unknown]
  - Urticaria [Unknown]
  - Rash pruritic [Unknown]
  - Local swelling [Unknown]
  - Injection site laceration [Unknown]
  - Infusion site pain [Unknown]
  - Infusion site erythema [Unknown]

NARRATIVE: CASE EVENT DATE: 201503
